FAERS Safety Report 17788530 (Version 2)
Quarter: 2020Q2

REPORT INFORMATION
  Report Type: Report from Study
  Country: CA (occurrence: CA)
  Receive Date: 20200514
  Receipt Date: 20200518
  Transmission Date: 20200714
  Serious: Yes (Other)
  Sender: FDA-Public Use
  Company Number: CA-INCYTE CORPORATION-2020IN004345

PATIENT

DRUGS (1)
  1. JAKAVI [Suspect]
     Active Substance: RUXOLITINIB
     Indication: GRAFT VERSUS HOST DISEASE
     Dosage: UNK
     Route: 065

REACTIONS (3)
  - Acute myeloid leukaemia [Recovered/Resolved with Sequelae]
  - Graft versus host disease in skin [Not Recovered/Not Resolved]
  - Product use in unapproved indication [Unknown]
